FAERS Safety Report 21868745 (Version 2)
Quarter: 2023Q2

REPORT INFORMATION
  Report Type: Report from Study
  Country: US (occurrence: US)
  Receive Date: 20230117
  Receipt Date: 20230406
  Transmission Date: 20230721
  Serious: No
  Sender: FDA-Public Use
  Company Number: US-ABBVIE-22K-163-4485635-00

PATIENT
  Age: 79 Year
  Sex: Male

DRUGS (2)
  1. IMBRUVICA [Suspect]
     Active Substance: IBRUTINIB
     Indication: Chronic lymphocytic leukaemia
     Route: 048
     Dates: start: 202109
  2. IMBRUVICA [Suspect]
     Active Substance: IBRUTINIB
     Indication: Chronic lymphocytic leukaemia
     Route: 048
     Dates: start: 20210922

REACTIONS (10)
  - Joint swelling [Recovering/Resolving]
  - Muscle swelling [Recovering/Resolving]
  - Unevaluable event [Recovering/Resolving]
  - Arthralgia [Unknown]
  - Gait inability [Recovered/Resolved]
  - Peripheral swelling [Recovering/Resolving]
  - Weight bearing difficulty [Recovering/Resolving]
  - Poor quality sleep [Recovering/Resolving]
  - Arthralgia [Recovering/Resolving]
  - Pain [Recovering/Resolving]

NARRATIVE: CASE EVENT DATE: 20220724
